FAERS Safety Report 9200766 (Version 1)
Quarter: 2013Q1

REPORT INFORMATION
  Report Type: Spontaneous
  Country: US (occurrence: None)
  Receive Date: 20130328
  Receipt Date: 20130328
  Transmission Date: 20140127
  Serious: Yes (Life-Threatening, Disabling, Other)
  Sender: FDA-Public Use
  Company Number: None

PATIENT
  Age: 37 Year
  Sex: Female
  Weight: 45.36 kg

DRUGS (1)
  1. DEPO-PROVERA IM [Suspect]

REACTIONS (2)
  - Breast cancer female [None]
  - Lymphadenopathy [None]
